FAERS Safety Report 8514499-2 (Version None)
Quarter: 2012Q3

REPORT INFORMATION
  Report Type: 
  Country: None (occurrence: None)
  Receive Date: 20120717
  Receipt Date: 20120715
  Transmission Date: 20120928
  Serious: Yes (Other)
  Sender: FDA-Public Use
  Company Number: US-PFIZER INC-2011181108

PATIENT
  Sex: Female

DRUGS (2)
  1. EFFEXOR XR [Suspect]
     Dosage: 75 MG, UNK
     Route: 048
  2. EFFEXOR XR [Suspect]
     Dosage: 150 MG, UNK
     Route: 048

REACTIONS (2)
  - NAUSEA [None]
  - SPINAL DISORDER [None]
